FAERS Safety Report 6830229-4 (Version None)
Quarter: 2010Q3

REPORT INFORMATION
  Report Type: 
  Country: None (occurrence: None)
  Receive Date: 20100712
  Receipt Date: 20090721
  Transmission Date: 20110219
  Serious: Yes (Death)
  Sender: FDA-Public Use
  Company Number: US-ASTRAZENECA-2008UW09559

PATIENT
  Sex: Female
  Weight: 113.4 kg

DRUGS (7)
  1. SEROQUEL [Suspect]
     Route: 048
     Dates: start: 20051102
  2. TOPAMAX [Concomitant]
     Dates: start: 20051028
  3. LISINOPRIL [Concomitant]
     Dates: start: 20080101
  4. LEVOTHYROXINE SODIUM [Concomitant]
     Dates: start: 20080101
  5. ZETIA [Concomitant]
     Dates: start: 20080101
  6. SIMVASTATIN [Concomitant]
     Dates: start: 20080101
  7. PAXIL [Concomitant]
     Dates: start: 20080101

REACTIONS (1)
  - DEATH [None]
